FAERS Safety Report 21396743 (Version 1)
Quarter: 2022Q3

REPORT INFORMATION
  Report Type: Report from Study
  Country: US (occurrence: US)
  Receive Date: 20220930
  Receipt Date: 20220930
  Transmission Date: 20221027
  Serious: No
  Sender: FDA-Public Use
  Company Number: US-NOVARTISTESTPH-NVSC2022US219905

PATIENT
  Sex: Female

DRUGS (1)
  1. KESIMPTA [Suspect]
     Active Substance: OFATUMUMAB
     Indication: Relapsing multiple sclerosis
     Dosage: UNK
     Route: 065
     Dates: start: 20220824

REACTIONS (6)
  - Fatigue [Unknown]
  - Malaise [Unknown]
  - Headache [Unknown]
  - Injection site pain [Unknown]
  - Injection site discomfort [Unknown]
  - Wrong technique in product usage process [Unknown]
